FAERS Safety Report 24773899 (Version 1)
Quarter: 2024Q4

REPORT INFORMATION
  Report Type: Report from Study
  Country: US (occurrence: US)
  Receive Date: 20241225
  Receipt Date: 20241225
  Transmission Date: 20250114
  Serious: Yes (Hospitalization)
  Sender: HLS THERAPEUTICS
  Company Number: US-HLS-202402046

PATIENT
  Age: 54 Year
  Sex: Female
  Weight: 82 kg

DRUGS (3)
  1. CLOZAPINE [Suspect]
     Active Substance: CLOZAPINE
     Indication: Schizoaffective disorder bipolar type
     Dosage: SINCE MORE THAN 10 YEARS
     Route: 048
  2. RISPERIDONE [Concomitant]
     Active Substance: RISPERIDONE
     Indication: Psychotic disorder
     Dosage: 1MG TWICE A DAY SINCE APPROXIMATELY 2 YEARS
     Route: 048
  3. LITHIUM [Concomitant]
     Active Substance: LITHIUM
     Route: 065

REACTIONS (1)
  - Psychiatric decompensation [Recovered/Resolved]
